FAERS Safety Report 9165184 (Version 1)
Quarter: 2013Q1

REPORT INFORMATION
  Report Type: Spontaneous
  Country: US (occurrence: None)
  Receive Date: 20130314
  Receipt Date: 20130314
  Transmission Date: 20140127
  Serious: No
  Sender: FDA-Public Use
  Company Number: None

PATIENT
  Age: 32 Year
  Sex: Female
  Weight: 64.5 kg

DRUGS (2)
  1. FLEBOGAMMA [Suspect]
     Indication: IMMUNODEFICIENCY COMMON VARIABLE
     Route: 042
     Dates: start: 20120101, end: 20120901
  2. FLEBOGAMMA [Suspect]
     Dates: start: 20130205, end: 20130306

REACTIONS (8)
  - Headache [None]
  - Influenza like illness [None]
  - Body temperature increased [None]
  - Nausea [None]
  - Chills [None]
  - Vomiting [None]
  - Blood pressure decreased [None]
  - Heart rate increased [None]
